FAERS Safety Report 10281903 (Version 2)
Quarter: 2014Q3

REPORT INFORMATION
  Report Type: Spontaneous
  Country: DE (occurrence: DE)
  Receive Date: 20140707
  Receipt Date: 20140707
  Transmission Date: 20150326
  Serious: Yes (Hospitalization)
  Sender: FDA-Public Use
  Company Number: GXKR2014DE002298

PATIENT
  Age: 43 Year
  Sex: Male

DRUGS (2)
  1. CLOZAPIN 1A PHARMA [Suspect]
     Active Substance: CLOZAPINE
     Indication: SCHIZOPHRENIA
     Dosage: 700 MG/DAY
     Route: 048
  2. CLOZAPIN 1A PHARMA [Suspect]
     Active Substance: CLOZAPINE
     Dosage: 575 MG/DAY
     Route: 048

REACTIONS (2)
  - Incontinence [Not Recovered/Not Resolved]
  - Enuresis [Not Recovered/Not Resolved]

NARRATIVE: CASE EVENT DATE: 20130503
